FAERS Safety Report 12557668 (Version 2)
Quarter: 2017Q4

REPORT INFORMATION
  Report Type: Report from Study
  Country: JP (occurrence: JP)
  Receive Date: 20160714
  Receipt Date: 20171017
  Transmission Date: 20180320
  Serious: Yes (Other)
  Sender: FDA-Public Use
  Company Number: JP-PFIZER INC-2016342927

PATIENT
  Sex: Female

DRUGS (1)
  1. DEXMEDETOMIDINE HYDROCHLORIDE. [Suspect]
     Active Substance: DEXMEDETOMIDINE HYDROCHLORIDE
     Indication: SEDATIVE THERAPY
     Dosage: UNK
     Route: 041

REACTIONS (2)
  - Pyrexia [Unknown]
  - Drug withdrawal convulsions [Recovered/Resolved]
